FAERS Safety Report 15913946 (Version 2)
Quarter: 2019Q1

REPORT INFORMATION
  Report Type: Spontaneous
  Country: US (occurrence: US)
  Receive Date: 20190204
  Receipt Date: 20190325
  Transmission Date: 20190417
  Serious: No
  Sender: FDA-Public Use
  Company Number: US-PFIZER INC-2019046598

PATIENT
  Sex: Female

DRUGS (2)
  1. CLINDAMYCIN PHOSPHATE. [Suspect]
     Active Substance: CLINDAMYCIN PHOSPHATE
     Indication: ACNE
     Dosage: 1% GEL, USE SPARINGLY ON AFFECTED AREAS ONCE OR TWICE DAILY AS NEEDED
     Route: 061
     Dates: start: 2016
  2. ADAPALENE. [Concomitant]
     Active Substance: ADAPALENE
     Indication: ACNE
     Dosage: 0.1% GEL AT NIGHT
     Route: 061
     Dates: start: 2018

REACTIONS (2)
  - Drug effect decreased [Unknown]
  - Product use issue [Unknown]
